FAERS Safety Report 12237675 (Version 2)
Quarter: 2016Q2

REPORT INFORMATION
  Report Type: Spontaneous
  Country: DK (occurrence: DK)
  Receive Date: 20160405
  Receipt Date: 20160415
  Transmission Date: 20160815
  Serious: Yes (Death, Congenital Anomaly)
  Sender: FDA-Public Use
  Company Number: DK-WATSON-2016-07050

PATIENT
  Age: 21 Week

DRUGS (2)
  1. SUMATRIPTAN ACTAVIS [Suspect]
     Active Substance: SUMATRIPTAN
     Indication: MIGRAINE
     Dosage: UNK UNK, PRN
     Route: 064
  2. ELETRIPTAN HYDROBROMIDE [Suspect]
     Active Substance: ELETRIPTAN HYDROBROMIDE
     Indication: MIGRAINE
     Dosage: UNK UNK, PRN
     Route: 064

REACTIONS (2)
  - Congenital anomaly [Fatal]
  - Foetal exposure during pregnancy [Recovered/Resolved]
